FAERS Safety Report 10472887 (Version 2)
Quarter: 2014Q3

REPORT INFORMATION
  Report Type: Report from Study
  Country: KR (occurrence: KR)
  Receive Date: 20140924
  Receipt Date: 20140924
  Transmission Date: 20150326
  Serious: Yes (Other)
  Sender: FDA-Public Use
  Company Number: KR-ELI_LILLY_AND_COMPANY-KR201408000848

PATIENT
  Sex: Female

DRUGS (4)
  1. LISPRO 50LIS50NPL KWIKPEN / MIRIOPEN [Suspect]
     Active Substance: INSULIN LISPRO
     Indication: TYPE 2 DIABETES MELLITUS
     Dosage: 9 U, TID
     Route: 058
     Dates: start: 20131101, end: 20140803
  2. LISPRO 50LIS50NPL KWIKPEN / MIRIOPEN [Suspect]
     Active Substance: INSULIN LISPRO
     Dosage: 9 U, QD
     Route: 058
     Dates: start: 20140803
  3. LISPRO 50LIS50NPL KWIKPEN / MIRIOPEN [Suspect]
     Active Substance: INSULIN LISPRO
     Dosage: 15 U, SINGLE
     Dates: start: 20140914
  4. LISPRO 50LIS50NPL KWIKPEN / MIRIOPEN [Suspect]
     Active Substance: INSULIN LISPRO
     Dosage: 8 U, BID
     Route: 058
     Dates: start: 20140803

REACTIONS (11)
  - Eye haemorrhage [Unknown]
  - Pruritus [Recovered/Resolved]
  - Hypoaesthesia [Not Recovered/Not Resolved]
  - Blood glucose decreased [Recovered/Resolved]
  - Glaucoma [Unknown]
  - Paraesthesia [Recovered/Resolved]
  - Abnormal sensation in eye [Not Recovered/Not Resolved]
  - Blindness transient [Unknown]
  - Vision blurred [Not Recovered/Not Resolved]
  - Pain in extremity [Not Recovered/Not Resolved]
  - Blood glucose increased [Recovering/Resolving]

NARRATIVE: CASE EVENT DATE: 201408
